FAERS Safety Report 9508361 (Version 1)
Quarter: 2013Q3

REPORT INFORMATION
  Report Type: Spontaneous
  Country: US (occurrence: US)
  Receive Date: 20130909
  Receipt Date: 20130909
  Transmission Date: 20140515
  Serious: Yes (Hospitalization, Other)
  Sender: FDA-Public Use
  Company Number: US-TEVA-430312USA

PATIENT
  Age: 56 Year
  Sex: Male

DRUGS (7)
  1. DIPHENHYDRAMINE [Suspect]
     Indication: OVERDOSE
     Dosage: UP TO 1.2G
     Route: 065
  2. METOPROLOL [Suspect]
     Indication: OVERDOSE
     Dosage: UP TO 500MG
     Route: 048
  3. LISINOPRIL [Suspect]
     Indication: OVERDOSE
     Dosage: {5 TABLETS
     Route: 065
  4. ISOSORBIDE MONONITRATE [Suspect]
     Indication: OVERDOSE
     Dosage: {5 TABLETS
     Route: 065
  5. FUROSEMIDE [Suspect]
     Indication: OVERDOSE
     Dosage: {5 TABLETS
     Route: 065
  6. INSULIN GLARGINE [Suspect]
     Indication: OVERDOSE
     Dosage: UP TO 3,300 UNITS (ELEVEN 100-UNITS/ML 3-ML PENS)
     Route: 065
  7. INSULIN GLARGINE [Suspect]
     Indication: TYPE 2 DIABETES MELLITUS
     Route: 065

REACTIONS (4)
  - Overdose [Recovering/Resolving]
  - Suicide attempt [Recovering/Resolving]
  - Hypoglycaemia [Recovered/Resolved]
  - Hypotension [Unknown]
